FAERS Safety Report 16391554 (Version 1)
Quarter: 2019Q2

REPORT INFORMATION
  Report Type: Spontaneous
  Country: JP (occurrence: JP)
  Receive Date: 20190605
  Receipt Date: 20190605
  Transmission Date: 20190711
  Serious: Yes (Hospitalization)
  Sender: FDA-Public Use
  Company Number: JP-TEVA-2019-JP-1058473

PATIENT
  Age: 86 Year
  Sex: Female

DRUGS (1)
  1. CLOPIDOGREL [Suspect]
     Active Substance: CLOPIDOGREL BISULFATE
     Indication: CEREBRAL INFARCTION
     Route: 048

REACTIONS (5)
  - Monoplegia [Recovered/Resolved]
  - Diplegia [Recovered/Resolved]
  - Spinal cord compression [Recovered/Resolved]
  - Spinal epidural haematoma [Recovered/Resolved]
  - Asthenia [Recovered/Resolved]
